FAERS Safety Report 11163500 (Version 1)
Quarter: 2015Q2

REPORT INFORMATION
  Report Type: Spontaneous
  Country: US (occurrence: US)
  Receive Date: 20150604
  Receipt Date: 20150604
  Transmission Date: 20150821
  Serious: Yes (Other)
  Sender: FDA-Public Use
  Company Number: US-DRREDDYS-USA/USA/15/0048299

PATIENT
  Age: 90 Year
  Sex: Female

DRUGS (1)
  1. GLIMEPIRIDE 1 MG [Suspect]
     Active Substance: GLIMEPIRIDE
     Indication: DIABETES MELLITUS
     Route: 065
     Dates: start: 201503, end: 20150402

REACTIONS (9)
  - Swollen tongue [Recovering/Resolving]
  - Dry mouth [Not Recovered/Not Resolved]
  - Photosensitivity reaction [Not Recovered/Not Resolved]
  - Nausea [Recovering/Resolving]
  - Heart rate increased [Recovering/Resolving]
  - Glossodynia [Not Recovered/Not Resolved]
  - Decreased appetite [Recovering/Resolving]
  - Lip swelling [Recovering/Resolving]
  - Dyspnoea [Not Recovered/Not Resolved]
